FAERS Safety Report 5319054-3 (Version None)
Quarter: 2007Q2

REPORT INFORMATION
  Report Type: 
  Country: None (occurrence: None)
  Receive Date: 20070508
  Receipt Date: 20070502
  Transmission Date: 20071010
  Serious: Yes (Life-Threatening, Hospitalization)
  Sender: FDA-Public Use
  Company Number: ES-ROCHE-472840

PATIENT
  Age: 33 Year
  Sex: Female
  Weight: 110 kg

DRUGS (7)
  1. DACLIZUMAB [Suspect]
     Indication: MULTIPLE SCLEROSIS
     Route: 058
     Dates: start: 20060322, end: 20060809
  2. INTERFERON BETA-1A [Concomitant]
     Indication: MULTIPLE SCLEROSIS
     Dates: start: 20050601
  3. CLORAZEPATE [Concomitant]
     Dates: start: 20030101
  4. MICRODIOL [Concomitant]
     Dates: start: 19940101
  5. ORLISTAT [Concomitant]
  6. 1 CONCOMITANT DRUG [Concomitant]
     Dosage: DRUG NAME REPORTED AS ETHYNILESTRADIOL.
     Dates: start: 19940101
  7. ETHINYL ESTRADIOL TAB [Concomitant]

REACTIONS (16)
  - APLASTIC ANAEMIA [None]
  - CARDIO-RESPIRATORY ARREST [None]
  - ERYTHEMA [None]
  - ERYTHEMA INFECTIOSUM [None]
  - HAEMOLYSIS [None]
  - HEPATITIS TOXIC [None]
  - HYPOTENSION [None]
  - IDIOSYNCRATIC DRUG REACTION [None]
  - INTERSTITIAL LUNG DISEASE [None]
  - MENINGITIS [None]
  - OLIGURIA [None]
  - PSORIASIS [None]
  - PYREXIA [None]
  - RASH [None]
  - SEPSIS [None]
  - THROMBOCYTOPENIA [None]
